FAERS Safety Report 8176519-7 (Version None)
Quarter: 2012Q1

REPORT INFORMATION
  Report Type: 
  Country: None (occurrence: None)
  Receive Date: 20120301
  Receipt Date: 20120226
  Transmission Date: 20120608
  Serious: Yes (Other)
  Sender: FDA-Public Use
  Company Number: US-PFIZER INC-2012050097

PATIENT
  Age: 6 Year
  Sex: Male

DRUGS (1)
  1. VIAGRA [Suspect]
     Dosage: UNK
     Dates: start: 20120226

REACTIONS (3)
  - ACCIDENTAL DRUG INTAKE BY CHILD [None]
  - SKIN DISCOLOURATION [None]
  - PENIS DISORDER [None]
